FAERS Safety Report 9451466 (Version 4)
Quarter: 2013Q4

REPORT INFORMATION
  Report Type: Report from Study
  Country: GB (occurrence: GB)
  Receive Date: 20130810
  Receipt Date: 20131206
  Transmission Date: 20140711
  Serious: Yes (Death)
  Sender: FDA-Public Use
  Company Number: GB-ROCHE-1260061

PATIENT
  Age: 86 Year
  Sex: Female
  Weight: 54 kg

DRUGS (8)
  1. RANIBIZUMAB [Suspect]
     Indication: AGE-RELATED MACULAR DEGENERATION
     Route: 050
     Dates: start: 20110722
  2. RANIBIZUMAB [Suspect]
     Route: 050
     Dates: start: 20130514
  3. RAMIPRIL [Concomitant]
     Route: 065
     Dates: start: 2007
  4. BUMETANIDE [Concomitant]
     Route: 065
     Dates: start: 2007
  5. WARFARIN [Concomitant]
     Route: 065
     Dates: start: 2003
  6. BISOPROLOL [Concomitant]
     Route: 065
     Dates: start: 2007
  7. CEFALEXIN [Concomitant]
     Route: 065
     Dates: start: 2013
  8. FUCIBET CREAM [Concomitant]

REACTIONS (6)
  - Cardiomegaly [Fatal]
  - Atrial fibrillation [Fatal]
  - Tricuspid valve incompetence [Fatal]
  - Mitral valve incompetence [Fatal]
  - Lower respiratory tract infection [Unknown]
  - Skin ulcer [Recovered/Resolved]
